FAERS Safety Report 12425367 (Version 2)
Quarter: 2016Q4

REPORT INFORMATION
  Report Type: Spontaneous
  Country: US (occurrence: US)
  Receive Date: 20160601
  Receipt Date: 20161104
  Transmission Date: 20170207
  Serious: Yes (Hospitalization)
  Sender: FDA-Public Use
  Company Number: US-SA-2016SA103463

PATIENT
  Age: 53 Year
  Sex: Female

DRUGS (1)
  1. AUBAGIO [Suspect]
     Active Substance: TERIFLUNOMIDE
     Indication: MULTIPLE SCLEROSIS
     Route: 048
     Dates: start: 20151217

REACTIONS (7)
  - Respiratory disorder [Unknown]
  - Alopecia [Unknown]
  - Migraine [Unknown]
  - Abdominal pain [Unknown]
  - Heart rate irregular [Unknown]
  - Body temperature increased [Unknown]
  - Headache [Unknown]
